FAERS Safety Report 23870791 (Version 1)
Quarter: 2024Q2

REPORT INFORMATION
  Report Type: Spontaneous
  Country: BE (occurrence: BE)
  Receive Date: 20240518
  Receipt Date: 20240518
  Transmission Date: 20240715
  Serious: Yes (Other)
  Sender: FDA-Public Use
  Company Number: BE-MLMSERVICE-20240502-PI047696-00218-1

PATIENT
  Age: 65 Year
  Sex: Male

DRUGS (8)
  1. METHOTREXATE [Suspect]
     Active Substance: METHOTREXATE
     Indication: Polymyalgia rheumatica
     Dates: start: 2021
  2. METHYLPREDNISOLONE [Suspect]
     Active Substance: METHYLPREDNISOLONE
     Indication: Polymyalgia rheumatica
     Dates: start: 2021
  3. BCG VACCINE [Suspect]
     Active Substance: BCG VACCINE
     Indication: Transitional cell carcinoma
     Dosage: DOSAGE AND FREQUENCY OF BCG, STRAIN TICE, 0,4-1,6 X 107 CFU/ML IN
     Dates: start: 202106, end: 2021
  4. TAMSULOSIN [Concomitant]
     Active Substance: TAMSULOSIN
  5. ATORVASTATIN [Concomitant]
     Active Substance: ATORVASTATIN
  6. ALLOPURINOL [Concomitant]
     Active Substance: ALLOPURINOL
  7. TELMISARTAN [Concomitant]
     Active Substance: TELMISARTAN
  8. ASPIRIN [Concomitant]
     Active Substance: ASPIRIN

REACTIONS (4)
  - Epididymitis [Unknown]
  - Tuberculosis [Recovered/Resolved]
  - Prostatitis [Unknown]
  - Off label use [Unknown]

NARRATIVE: CASE EVENT DATE: 20210101
